FAERS Safety Report 11588426 (Version 1)
Quarter: 2015Q4

REPORT INFORMATION
  Report Type: Spontaneous
  Country: US (occurrence: None)
  Receive Date: 20151001
  Receipt Date: 20151001
  Transmission Date: 20160304
  Serious: No
  Sender: FDA-Public Use
  Company Number: None

PATIENT
  Age: 64 Year
  Sex: Male
  Weight: 76.7 kg

DRUGS (2)
  1. VANCOMYCIN [Suspect]
     Active Substance: VANCOMYCIN
     Indication: INFECTION
     Route: 042
     Dates: start: 20150426, end: 20150502
  2. VANCOMYCIN [Suspect]
     Active Substance: VANCOMYCIN
     Route: 048
     Dates: start: 20150429, end: 20150502

REACTIONS (1)
  - Neutropenia [None]

NARRATIVE: CASE EVENT DATE: 20150505
